FAERS Safety Report 14257854 (Version 1)
Quarter: 2017Q4

REPORT INFORMATION
  Report Type: Spontaneous
  Country: US (occurrence: None)
  Receive Date: 20171206
  Receipt Date: 20171206
  Transmission Date: 20180321
  Serious: Yes (Other)
  Sender: FDA-Public Use
  Company Number: None

PATIENT
  Age: 66 Year
  Sex: Male

DRUGS (2)
  1. MYCOPHENOLATE [Suspect]
     Active Substance: MYCOPHENOLIC ACID
     Indication: RENAL TRANSPLANT
     Dosage: DOSE AMOUNT - 2 TWICE DAILY
     Route: 048
     Dates: start: 20120514
  2. TACROLIMUS. [Suspect]
     Active Substance: TACROLIMUS
     Indication: RENAL TRANSPLANT
     Dosage: DOSE AMOUNT - 5 DAILY
     Route: 048
     Dates: start: 20120514

REACTIONS (1)
  - Skin cancer [None]

NARRATIVE: CASE EVENT DATE: 2017
